FAERS Safety Report 7547327-2 (Version None)
Quarter: 2011Q2

REPORT INFORMATION
  Report Type: 
  Country: None (occurrence: None)
  Receive Date: 20110614
  Receipt Date: 20110601
  Transmission Date: 20111010
  Serious: Yes (Hospitalization)
  Sender: FDA-Public Use
  Company Number: AU-UCBSA-034363

PATIENT
  Sex: Male
  Weight: 95.6 kg

DRUGS (2)
  1. CIMZIA [Suspect]
     Indication: CROHN'S DISEASE
     Dosage: FOR FIRST 3 DOSES; 400 MG 1 TIME EVERY 2 WEEKS
     Route: 058
     Dates: start: 20090601, end: 20100819
  2. CIMZIA [Suspect]
     Route: 058
     Dates: start: 20101026

REACTIONS (1)
  - SURGERY [None]
